FAERS Safety Report 9905852 (Version 1)
Quarter: 2014Q1

REPORT INFORMATION
  Report Type: Report from Study
  Country: US (occurrence: US)
  Receive Date: 20140218
  Receipt Date: 20140218
  Transmission Date: 20141002
  Serious: Yes (Hospitalization)
  Sender: FDA-Public Use
  Company Number: US-ABBVIE-14P-163-1199689-00

PATIENT
  Age: 64 Year
  Sex: Male

DRUGS (8)
  1. HUMIRA [Suspect]
     Indication: PSORIASIS
     Dates: start: 201009
  2. NAPROSYN [Concomitant]
     Indication: PAIN
  3. NAPROSYN [Concomitant]
     Indication: INFLAMMATION
  4. LIPITOR [Concomitant]
     Indication: BLOOD CHOLESTEROL ABNORMAL
  5. BECTICAL [Concomitant]
     Indication: PSORIASIS
     Route: 061
  6. LIDEX [Concomitant]
     Indication: PSORIASIS
     Route: 061
  7. LAC HYDRIN [Concomitant]
     Indication: PSORIASIS
     Dosage: OCCASIONALLY
     Route: 061
  8. DIPHENHYDRAMINE [Concomitant]
     Indication: PRODUCT USED FOR UNKNOWN INDICATION

REACTIONS (14)
  - Transient ischaemic attack [Unknown]
  - Aura [Unknown]
  - Headache [Unknown]
  - Headache [Not Recovered/Not Resolved]
  - Palpitations [Unknown]
  - Aura [Recovered/Resolved]
  - Headache [Recovered/Resolved]
  - Dizziness [Recovered/Resolved]
  - Dizziness [Recovering/Resolving]
  - Headache [Recovering/Resolving]
  - Respiratory tract congestion [Unknown]
  - Fatigue [Unknown]
  - Asthenia [Unknown]
  - Sinus headache [Unknown]
